FAERS Safety Report 10441186 (Version 1)
Quarter: 2014Q3

REPORT INFORMATION
  Report Type: Spontaneous
  Country: US (occurrence: None)
  Receive Date: 20140908
  Receipt Date: 20140908
  Transmission Date: 20150326
  Serious: Yes (Other)
  Sender: FDA-Public Use
  Company Number: None

PATIENT
  Age: 67 Year
  Sex: Female
  Weight: 88.45 kg

DRUGS (5)
  1. LEVOCETIRIZI [Concomitant]
  2. AMLODIPINE [Concomitant]
     Active Substance: AMLODIPINE BESYLATE
  3. METOPROLOL [Concomitant]
     Active Substance: METOPROLOL
  4. DETROL WA [Concomitant]
  5. CEFADROXIL. [Suspect]
     Active Substance: CEFADROXIL
     Indication: FUNGAL INFECTION
     Dosage: 500MG
     Route: 048
     Dates: start: 20140813, end: 20140818

REACTIONS (6)
  - Mood altered [None]
  - Abdominal pain upper [None]
  - Dizziness [None]
  - Confusional state [None]
  - Anal spasm [None]
  - Headache [None]

NARRATIVE: CASE EVENT DATE: 20140818
